FAERS Safety Report 25467981 (Version 1)
Quarter: 2025Q2

REPORT INFORMATION
  Report Type: Spontaneous
  Country: CN (occurrence: CN)
  Receive Date: 20250623
  Receipt Date: 20250623
  Transmission Date: 20250716
  Serious: Yes (Other)
  Sender: MYLAN
  Company Number: CN-MYLANLABS-2025M1051929

PATIENT
  Age: 51 Year
  Sex: Male
  Weight: 81 kg

DRUGS (8)
  1. LIPITOR [Suspect]
     Active Substance: ATORVASTATIN CALCIUM
     Indication: Acute coronary syndrome
     Dosage: 20 MILLIGRAM, QD
     Dates: start: 20230421, end: 20250617
  2. LIPITOR [Suspect]
     Active Substance: ATORVASTATIN CALCIUM
     Dosage: 20 MILLIGRAM, QD
     Route: 048
     Dates: start: 20230421, end: 20250617
  3. LIPITOR [Suspect]
     Active Substance: ATORVASTATIN CALCIUM
     Dosage: 20 MILLIGRAM, QD
     Route: 048
     Dates: start: 20230421, end: 20250617
  4. LIPITOR [Suspect]
     Active Substance: ATORVASTATIN CALCIUM
     Dosage: 20 MILLIGRAM, QD
     Dates: start: 20230421, end: 20250617
  5. ALIROCUMAB [Suspect]
     Active Substance: ALIROCUMAB
     Indication: Acute coronary syndrome
     Dosage: 75 MILLIGRAM, Q2W
     Dates: start: 20230423, end: 20250617
  6. ALIROCUMAB [Suspect]
     Active Substance: ALIROCUMAB
     Dosage: 75 MILLIGRAM, Q2W
     Route: 058
     Dates: start: 20230423, end: 20250617
  7. ALIROCUMAB [Suspect]
     Active Substance: ALIROCUMAB
     Dosage: 75 MILLIGRAM, Q2W
     Route: 058
     Dates: start: 20230423, end: 20250617
  8. ALIROCUMAB [Suspect]
     Active Substance: ALIROCUMAB
     Dosage: 75 MILLIGRAM, Q2W
     Dates: start: 20230423, end: 20250617

REACTIONS (1)
  - Dermatitis allergic [Recovering/Resolving]

NARRATIVE: CASE EVENT DATE: 20230528
